FAERS Safety Report 7411418-7 (Version None)
Quarter: 2011Q2

REPORT INFORMATION
  Report Type: 
  Country: None (occurrence: None)
  Receive Date: 20110413
  Receipt Date: 20100730
  Transmission Date: 20111010
  Serious: No
  Sender: FDA-Public Use
  Company Number: US-BRISTOL-MYERS SQUIBB COMPANY-15219181

PATIENT
  Sex: Male

DRUGS (2)
  1. ERBITUX [Suspect]
     Dosage: 200 MG VIAL
     Route: 042
     Dates: start: 20100729, end: 20100729
  2. RADIATION THERAPY [Concomitant]

REACTIONS (3)
  - FLUSHING [None]
  - RASH [None]
  - PRURITUS [None]
